FAERS Safety Report 6580055-9 (Version None)
Quarter: 2010Q1

REPORT INFORMATION
  Report Type: 
  Country: None (occurrence: None)
  Receive Date: 20100212
  Receipt Date: 20100202
  Transmission Date: 20100710
  Serious: Yes (Hospitalization)
  Sender: FDA-Public Use
  Company Number: TR-WATSON-2010-01501

PATIENT
  Age: 38 Year
  Sex: Female

DRUGS (1)
  1. LAMOTRIGINE [Suspect]
     Indication: DEPRESSION
     Dosage: 100 MG, DAILY
     Route: 048

REACTIONS (2)
  - OBSESSIVE THOUGHTS [None]
  - OBSESSIVE-COMPULSIVE DISORDER [None]
